FAERS Safety Report 6435610-3 (Version None)
Quarter: 2009Q4

REPORT INFORMATION
  Report Type: 
  Country: None (occurrence: None)
  Receive Date: 20091111
  Receipt Date: 20091029
  Transmission Date: 20100525
  Serious: No
  Sender: FDA-Public Use
  Company Number: US-ROXANE LABORATORIES, INC.-2009-RO-01134RO

PATIENT
  Sex: Male

DRUGS (2)
  1. METHADONE HCL [Suspect]
  2. MORPHINE [Suspect]

REACTIONS (1)
  - DRUG DISPENSING ERROR [None]
